FAERS Safety Report 24996172 (Version 1)
Quarter: 2025Q1

REPORT INFORMATION
  Report Type: Other
  Country: GB (occurrence: GB)
  Receive Date: 20250221
  Receipt Date: 20250221
  Transmission Date: 20250409
  Serious: Yes (Other)
  Sender: STRIDES
  Company Number: None

PATIENT
  Age: 60 Year
  Sex: Female
  Weight: 54 kg

DRUGS (2)
  1. OXYBUTYNIN [Suspect]
     Active Substance: OXYBUTYNIN
     Indication: Hypertonic bladder
     Route: 065
     Dates: start: 20241008, end: 20241021
  2. Vagirux [Concomitant]
     Indication: Postmenopause
     Route: 065
     Dates: start: 20230130

REACTIONS (4)
  - Odynophagia [Unknown]
  - Dry mouth [None]
  - Tongue dry [Unknown]
  - Dyspepsia [Recovering/Resolving]

NARRATIVE: CASE EVENT DATE: 20241008
